FAERS Safety Report 20840373 (Version 6)
Quarter: 2023Q1

REPORT INFORMATION
  Report Type: Report from Study
  Country: IT (occurrence: None)
  Receive Date: 20220517
  Receipt Date: 20230329
  Transmission Date: 20230417
  Serious: Yes (Hospitalization)
  Sender: FDA-Public Use
  Company Number: IT-ROCHE-3093194

PATIENT
  Age: 65 Year
  Sex: Female
  Weight: 65 kg

DRUGS (6)
  1. OCRELIZUMAB [Suspect]
     Active Substance: OCRELIZUMAB
     Indication: Progressive multiple sclerosis
     Dosage: AS PER PROTOCOL: OCRELIZUMAB WILL BE ADMINISTERED VIA INTRAVENOUS (IV) INFUSION AT AN INITIAL DOSE O
     Route: 042
     Dates: start: 20190325
  2. BROMAZEPAM [Concomitant]
     Active Substance: BROMAZEPAM
     Route: 048
     Dates: start: 20190218
  3. LOBIDIUR [Concomitant]
     Active Substance: HYDROCHLOROTHIAZIDE\NEBIVOLOL HYDROCHLORIDE
     Indication: Hypertension
     Route: 048
  4. METHYLPREDNISOLONE [Concomitant]
     Active Substance: METHYLPREDNISOLONE
     Indication: Premedication
     Dosage: ADDITIONAL TREATMENT DATES: 08/APR/2019 (WEEK 2), 18/SEP/2019 (WEEK 24), 25/NOV/2020 (WEEK 72), 28/A
     Route: 042
     Dates: start: 20190325, end: 20190325
  5. CHLORPHENIRAMINE MALEATE [Concomitant]
     Active Substance: CHLORPHENIRAMINE MALEATE
     Indication: Premedication
     Dosage: ADDITIONAL TREATMENT DATES: 08/APR/2019 (WEEK 2), 18/SEP/2019 (WEEK 24), 25/NOV/2020 (WEEK 72), 28/A
     Route: 030
     Dates: start: 20190325, end: 20190325
  6. ACETAMINOPHEN [Concomitant]
     Active Substance: ACETAMINOPHEN
     Indication: Premedication
     Dosage: ADDITIONAL TREATMENT DATES: 08/APR/2019 (WEEK 2), 18/SEP/2019 (WEEK 24), 25/NOV/2020 (WEEK 72), 28/A
     Route: 048
     Dates: start: 20190325, end: 20190325

REACTIONS (2)
  - Invasive breast carcinoma [Recovering/Resolving]
  - Breast cancer in situ [Recovering/Resolving]

NARRATIVE: CASE EVENT DATE: 20220330
